FAERS Safety Report 6228418-5 (Version None)
Quarter: 2009Q2

REPORT INFORMATION
  Report Type: 
  Country: None (occurrence: None)
  Receive Date: 20090612
  Receipt Date: 20090603
  Transmission Date: 20091009
  Serious: Yes (Life-Threatening, Hospitalization)
  Sender: FDA-Public Use
  Company Number: US-ABBOTT-09P-163-0578102-00

PATIENT
  Sex: Male

DRUGS (6)
  1. LEUPROLIDE ACETATE [Suspect]
     Indication: PROSTATE CANCER
     Route: 050
     Dates: start: 20080826
  2. METHYLPREDNISOLONE ACETATE [Concomitant]
     Indication: ARTHRITIS
     Route: 048
     Dates: start: 20050101
  3. PRILOSEC [Concomitant]
     Indication: GASTROOESOPHAGEAL REFLUX DISEASE
     Route: 048
     Dates: start: 20050101
  4. PROSCAR [Concomitant]
     Indication: DYSURIA
     Route: 048
     Dates: start: 20050101
  5. ACTONEL [Concomitant]
     Indication: OSTEOPOROSIS
     Route: 048
     Dates: start: 20060101
  6. DYNACIRC [Concomitant]
     Indication: HYPERTENSION
     Route: 048
     Dates: start: 20070101

REACTIONS (1)
  - DEEP VEIN THROMBOSIS [None]
